FAERS Safety Report 7671000-3 (Version None)
Quarter: 2011Q3

REPORT INFORMATION
  Report Type: 
  Country: None (occurrence: None)
  Receive Date: 20110809
  Receipt Date: 20110728
  Transmission Date: 20111222
  Serious: Yes (Death, Hospitalization, Other)
  Sender: FDA-Public Use
  Company Number: US-BAYER-201012053NA

PATIENT
  Age: 48 Year
  Sex: Male
  Weight: 66 kg

DRUGS (43)
  1. VANCOMYCIN [Concomitant]
     Dosage: 1 GM, UNK
     Route: 042
     Dates: start: 20030915
  2. TRASYLOL [Suspect]
     Indication: TRICUSPID VALVE REPLACEMENT
     Dosage: UNK
     Route: 042
     Dates: start: 20030915
  3. CEFAZOLIN [Concomitant]
     Dosage: 2 GRAMS
     Route: 042
     Dates: start: 20030418
  4. SINGULAIR [Concomitant]
  5. ISOFLURANE [Concomitant]
     Dosage: UNK
     Dates: start: 20030915, end: 20030915
  6. PROPOFOL [Concomitant]
     Dosage: UNK
     Route: 042
     Dates: start: 20030915, end: 20030915
  7. BUMEX [Concomitant]
  8. TRASYLOL [Suspect]
     Indication: MITRAL VALVE REPAIR
     Dosage: 200ML, CONTINUOUS INFUSION AT 50ML/HOUR.
     Route: 042
     Dates: start: 20030418, end: 20030418
  9. TRASYLOL [Suspect]
     Indication: ARTERIAL CATHETERISATION
  10. FRESH FROZEN PLASMA [Concomitant]
     Dosage: 8 UNITS
     Route: 042
     Dates: start: 20030418
  11. PHENYLEPHRINE HCL [Concomitant]
     Dosage: 100 MG, UNK
     Route: 042
     Dates: start: 20030915
  12. FENTANYL [Concomitant]
     Dosage: 5 MG
     Route: 042
     Dates: start: 20030418
  13. SODIUM BICARBONATE [Concomitant]
     Dosage: 75 MILLIEQUIVALENTS
     Route: 042
     Dates: start: 20030418
  14. NORVASC [Concomitant]
     Route: 048
  15. SOLU-MEDROL [Concomitant]
     Dosage: 250 MG, UNK
     Route: 042
     Dates: start: 20030915, end: 20030915
  16. TRASYLOL [Suspect]
     Indication: STERNOTOMY
  17. MILRINONE [Concomitant]
     Dosage: UNK
     Route: 042
     Dates: start: 20030915
  18. MAGNESIUM SULFATE [Concomitant]
     Dosage: 3 GRAMS
     Route: 042
     Dates: start: 20030418
  19. CALCIUM CHLORIDE [Concomitant]
     Dosage: 1 GRAM
     Route: 042
     Dates: start: 20030418
  20. ESMOLOL [Concomitant]
     Dosage: 10 MG
     Route: 042
     Dates: start: 20030418
  21. SODIUM BICARBONATE [Concomitant]
     Dosage: UNK
     Route: 042
     Dates: start: 20030915
  22. VASOPRESSIN [Concomitant]
     Dosage: UNK
     Route: 042
     Dates: start: 20030915
  23. TRASYLOL [Suspect]
     Indication: TRANSPLANT
     Dosage: INITIAL TEST DOSE
     Route: 042
     Dates: start: 20030418, end: 20030418
  24. RED BLOOD CELLS [Concomitant]
     Dosage: 4 UNITS
     Route: 042
     Dates: start: 20030418
  25. MILRINONE [Concomitant]
     Dosage: UNK
     Route: 042
     Dates: start: 20030418
  26. DOPAMINE HCL [Concomitant]
     Dosage: UNK
     Route: 042
     Dates: start: 20030418
  27. VANCOMYCIN [Concomitant]
     Dosage: 1 GRAM
     Route: 042
     Dates: start: 20030418
  28. HEPARIN [Concomitant]
     Dosage: 20000 UNITS
     Route: 042
     Dates: start: 20030418
  29. CLEOCIN HYDROCHLORIDE [Concomitant]
     Dosage: UNK
     Route: 042
     Dates: start: 20030101
  30. PANCURONIUM [Concomitant]
     Dosage: UNK
     Route: 042
     Dates: start: 20030915, end: 20030915
  31. PROTAMINE [Concomitant]
     Dosage: UNK
     Route: 042
     Dates: start: 20030915, end: 20030915
  32. ARAMINE [Concomitant]
     Dosage: 20 MG, UNK
     Route: 042
     Dates: start: 20030915
  33. PLATELETS [Concomitant]
     Dosage: 3 UNITS
     Route: 042
     Dates: start: 20030418
  34. LASIX [Concomitant]
     Dosage: 20 MG
     Route: 042
     Dates: start: 20030418
  35. HEPARIN [Concomitant]
     Dosage: 26000 UNITS, UNK
     Route: 042
     Dates: start: 20030915
  36. MANNITOL [Concomitant]
     Dosage: UNK
     Route: 042
     Dates: start: 20030915
  37. ARGATROBAN [Concomitant]
     Indication: PLATELET AGGREGATION ABNORMAL
  38. FENTANYL [Concomitant]
     Dosage: UNK
     Route: 042
     Dates: start: 20030915, end: 20030915
  39. DILANTIN [Concomitant]
     Dosage: UNK
     Route: 048
     Dates: start: 20020901
  40. VERSED [Concomitant]
     Dosage: UNK
     Route: 042
     Dates: start: 20030915, end: 20030915
  41. DOBUTAMINE HCL [Concomitant]
     Dosage: UNK
     Route: 042
     Dates: start: 20030915
  42. NITROGLYCERIN [Concomitant]
     Dosage: UNK
     Route: 042
     Dates: start: 20030418
  43. PHENYLEPHRINE HCL [Concomitant]
     Dosage: UNK
     Route: 042
     Dates: start: 20030418

REACTIONS (13)
  - RENAL FAILURE [None]
  - PAIN [None]
  - ANHEDONIA [None]
  - INJURY [None]
  - RENAL IMPAIRMENT [None]
  - STRESS [None]
  - MULTI-ORGAN FAILURE [None]
  - UNEVALUABLE EVENT [None]
  - EMOTIONAL DISTRESS [None]
  - ANXIETY [None]
  - DEATH [None]
  - RENAL INJURY [None]
  - FEAR [None]
